FAERS Safety Report 17534211 (Version 1)
Quarter: 2020Q1

REPORT INFORMATION
  Report Type: Spontaneous
  Country: US (occurrence: US)
  Receive Date: 20200312
  Receipt Date: 20200312
  Transmission Date: 20200409
  Serious: No
  Sender: FDA-Public Use
  Company Number: US-009507513-2003USA003366

PATIENT
  Age: 26 Year
  Sex: Female
  Weight: 94.33 kg

DRUGS (1)
  1. NEXPLANON [Suspect]
     Active Substance: ETONOGESTREL
     Indication: CONTRACEPTION
     Dosage: 68 MILLIGRAM 3 YEARS (IN THE ARM)
     Route: 059
     Dates: start: 20200224

REACTIONS (6)
  - Contraindicated product administered [Unknown]
  - Implant site pain [Recovered/Resolved]
  - Implant site bruising [Recovered/Resolved]
  - Crying [Recovered/Resolved]
  - Implant site swelling [Recovered/Resolved]
  - Device deployment issue [Not Recovered/Not Resolved]

NARRATIVE: CASE EVENT DATE: 20200224
